FAERS Safety Report 8419204-6 (Version None)
Quarter: 2012Q2

REPORT INFORMATION
  Report Type: 
  Country: None (occurrence: None)
  Receive Date: 20120607
  Receipt Date: 20120521
  Transmission Date: 20120825
  Serious: No
  Sender: FDA-Public Use
  Company Number: US-BAYER-2012-052614

PATIENT

DRUGS (5)
  1. ACETAMINOPHEN [Concomitant]
  2. ALEVE (CAPLET) [Suspect]
     Route: 048
  3. UNKNOWN [Concomitant]
  4. IBUPROFEN (ADVIL) [Concomitant]
  5. ASPIRIN [Suspect]

REACTIONS (1)
  - DRUG INEFFECTIVE [None]
